FAERS Safety Report 15190568 (Version 2)
Quarter: 2018Q3

REPORT INFORMATION
  Report Type: Spontaneous
  Country: JP (occurrence: JP)
  Receive Date: 20180724
  Receipt Date: 20180807
  Transmission Date: 20181010
  Serious: Yes (Hospitalization, Other)
  Sender: FDA-Public Use
  Company Number: JP-GLAXOSMITHKLINE-JP2018JPN128451

PATIENT

DRUGS (1)
  1. SULTANOL [Suspect]
     Active Substance: ALBUTEROL SULFATE
     Dosage: 6 DF, UNK
     Route: 055

REACTIONS (2)
  - Hospitalisation [Unknown]
  - Product use issue [Unknown]
